FAERS Safety Report 10409525 (Version 1)
Quarter: 2014Q3

REPORT INFORMATION
  Report Type: Spontaneous
  Country: GB (occurrence: None)
  Receive Date: 20140822
  Receipt Date: 20140822
  Transmission Date: 20150326
  Serious: Yes (Congenital Anomaly, Other)
  Sender: FDA-Public Use
  Company Number: GB-ZYDUS-004285

PATIENT
  Age: 7 Month
  Sex: Female
  Weight: 3.83 kg

DRUGS (1)
  1. SODIUM VALPROATE (SODIUM VALPROATE) [Suspect]
     Active Substance: VALPROATE SODIUM
     Route: 064

REACTIONS (3)
  - Foetal exposure during pregnancy [None]
  - Foetal anticonvulsant syndrome [None]
  - Coloboma [None]
